FAERS Safety Report 22320759 (Version 1)
Quarter: 2023Q2

REPORT INFORMATION
  Report Type: Spontaneous
  Country: US (occurrence: US)
  Receive Date: 20230515
  Receipt Date: 20230515
  Transmission Date: 20230722
  Serious: No
  Sender: FDA-Public Use
  Company Number: US-TEVA-2023-US-2882982

PATIENT

DRUGS (1)
  1. METHYLPHENIDATE [Suspect]
     Active Substance: METHYLPHENIDATE
     Indication: Product used for unknown indication
     Dosage: 54MG
     Route: 065
     Dates: start: 202204

REACTIONS (4)
  - Anxiety [Unknown]
  - Nervousness [Unknown]
  - Discomfort [Unknown]
  - Irritability [Unknown]
